FAERS Safety Report 17209336 (Version 1)
Quarter: 2019Q4

REPORT INFORMATION
  Report Type: Spontaneous
  Country: US (occurrence: US)
  Receive Date: 20191227
  Receipt Date: 20191227
  Transmission Date: 20200122
  Serious: No
  Sender: FDA-Public Use
  Company Number: US-GUERBET-US-20190094

PATIENT
  Age: 51 Year
  Sex: Female
  Weight: 76.6 kg

DRUGS (2)
  1. OPTIRAY 300 [Suspect]
     Active Substance: IOVERSOL
     Indication: COMPUTERISED TOMOGRAM
     Route: 042
     Dates: start: 20190425, end: 20190425
  2. MEDROL [Concomitant]
     Active Substance: METHYLPREDNISOLONE
     Indication: PREMEDICATION
     Dosage: ONCE 12 HOURS BEFORE CT AND ONCE 2 HOURS BEFORE CT
     Dates: start: 20190424, end: 20190425

REACTIONS (1)
  - Pruritus [Recovered/Resolved]

NARRATIVE: CASE EVENT DATE: 20190425
